FAERS Safety Report 5208395-6 (Version None)
Quarter: 2006Q4

REPORT INFORMATION
  Report Type: 
  Country: None (occurrence: None)
  Receive Date: 20061026
  Receipt Date: 20060804
  Transmission Date: 20070319
  Serious: No
  Sender: FDA-Public Use
  Company Number: 2006097092

PATIENT
  Age: 54 Year
  Sex: Female
  Weight: 71.2147 kg

DRUGS (3)
  1. LYRICA [Suspect]
     Indication: DRUG USE FOR UNKNOWN INDICATION
     Dosage: 150 MG (50 MG,3 IN 1 D), ORAL
     Route: 048
     Dates: start: 20060727, end: 20060729
  2. IBUPROFEN [Concomitant]
  3. ASPIRIN [Concomitant]

REACTIONS (3)
  - HEADACHE [None]
  - PAIN [None]
  - WEIGHT INCREASED [None]
